FAERS Safety Report 8178531-0 (Version None)
Quarter: 2012Q1

REPORT INFORMATION
  Report Type: 
  Country: None (occurrence: None)
  Receive Date: 20120301
  Receipt Date: 20120222
  Transmission Date: 20120608
  Serious: Yes (Hospitalization)
  Sender: FDA-Public Use
  Company Number: FR-ASTRAZENECA-2011SE70826

PATIENT
  Age: 23133 Day
  Sex: Female
  Weight: 69 kg

DRUGS (9)
  1. STABLON [Concomitant]
     Indication: DEPRESSION
  2. PLAVIX [Concomitant]
     Indication: CORONARY ARTERY DISEASE
  3. LESCOL [Concomitant]
  4. IRESSA [Suspect]
     Indication: METASTATIC BRONCHIAL CARCINOMA
     Route: 048
     Dates: start: 20110618
  5. PLAVIX [Concomitant]
     Indication: ARTERIAL DISORDER
  6. VALSARTAN [Concomitant]
     Indication: HYPERTENSION
  7. LEXOMIL [Concomitant]
  8. NEBIVOLOL HCL [Concomitant]
  9. IKOREL [Concomitant]

REACTIONS (1)
  - PERICARDITIS CONSTRICTIVE [None]
